FAERS Safety Report 19921178 (Version 3)
Quarter: 2021Q4

REPORT INFORMATION
  Report Type: Report from Study
  Country: JP (occurrence: JP)
  Receive Date: 20211005
  Receipt Date: 20211129
  Transmission Date: 20220303
  Serious: Yes (Hospitalization)
  Sender: FDA-Public Use
  Company Number: JP-FERRING-EVA202101495FERRINGPH

PATIENT
  Age: 73 Year
  Sex: Male
  Weight: 45 kg

DRUGS (5)
  1. DESMOPRESSIN [Suspect]
     Active Substance: DESMOPRESSIN
     Indication: Nocturia
     Dosage: 50 UG
     Route: 065
     Dates: start: 20210614, end: 20210629
  2. TADALAFIL [Concomitant]
     Active Substance: TADALAFIL
     Indication: Nocturia
     Route: 048
  3. TOVIAZ [Concomitant]
     Active Substance: FESOTERODINE FUMARATE
     Indication: Nocturia
     Route: 048
  4. NAFTOPIDIL [Concomitant]
     Active Substance: NAFTOPIDIL
     Indication: Nocturia
     Route: 048
  5. SPRYCEL [Concomitant]
     Active Substance: DASATINIB
     Indication: Chronic myeloid leukaemia
     Route: 048

REACTIONS (4)
  - Pleural effusion [Recovered/Resolved]
  - Hyponatraemia [Recovered/Resolved]
  - Oedema peripheral [Recovered/Resolved]
  - Drug monitoring procedure incorrectly performed [Unknown]

NARRATIVE: CASE EVENT DATE: 20210629
